FAERS Safety Report 6259276-0 (Version None)
Quarter: 2009Q3

REPORT INFORMATION
  Report Type: 
  Country: None (occurrence: None)
  Receive Date: 20090707
  Receipt Date: 20090622
  Transmission Date: 20100115
  Serious: Yes (Other)
  Sender: FDA-Public Use
  Company Number: US-GENENTECH-286015

PATIENT

DRUGS (1)
  1. AVASTIN [Suspect]
     Indication: RENAL CELL CARCINOMA
     Dosage: 15 MG/KG, Q3W
     Route: 042

REACTIONS (5)
  - ANAEMIA [None]
  - DECREASED APPETITE [None]
  - HAEMOTHORAX [None]
  - PULMONARY EMBOLISM [None]
  - THROMBOCYTOPENIA [None]
